FAERS Safety Report 8447708-9 (Version None)
Quarter: 2012Q2

REPORT INFORMATION
  Report Type: 
  Country: None (occurrence: None)
  Receive Date: 20120619
  Receipt Date: 20120615
  Transmission Date: 20120825
  Serious: Yes (Hospitalization)
  Sender: FDA-Public Use
  Company Number: US-PFIZER INC-2012145075

PATIENT
  Sex: Female

DRUGS (4)
  1. SUTENT [Suspect]
     Indication: RENAL CANCER
     Dosage: 50 MG, 1X/DAY
     Route: 048
  2. IRON [Concomitant]
     Dosage: UNK
  3. SODIUM POLYSTYRENE SULFONATE [Concomitant]
     Dosage: UNK
  4. GLIPIZIDE [Concomitant]
     Dosage: UNK

REACTIONS (1)
  - BREAST PAIN [None]
